FAERS Safety Report 5671066-6 (Version None)
Quarter: 2008Q1

REPORT INFORMATION
  Report Type: 
  Country: None (occurrence: None)
  Receive Date: 20080313
  Receipt Date: 20080303
  Transmission Date: 20080703
  Serious: Yes (Hospitalization)
  Sender: FDA-Public Use
  Company Number: 2008S1003833

PATIENT
  Age: 64 Year
  Sex: Female

DRUGS (1)
  1. FENTANYL TRANSDERMAL SYSTEM [Suspect]
     Dosage: ; TRANSDERMAL
     Route: 062

REACTIONS (2)
  - COMA [None]
  - INCORRECT DOSE ADMINISTERED [None]
